FAERS Safety Report 24248387 (Version 1)
Quarter: 2024Q3

REPORT INFORMATION
  Report Type: Spontaneous
  Country: US (occurrence: US)
  Receive Date: 20240826
  Receipt Date: 20240826
  Transmission Date: 20241017
  Serious: No
  Sender: MACLEODS
  Company Number: US-MACLEODS PHARMA-MAC2024048881

PATIENT

DRUGS (1)
  1. CANDESARTAN [Suspect]
     Active Substance: CANDESARTAN
     Indication: Hypertension
     Dosage: NDC: 33342-116-07
     Route: 065
     Dates: start: 20240807, end: 20240809

REACTIONS (4)
  - Oedema [Recovering/Resolving]
  - Paraesthesia oral [Recovering/Resolving]
  - Lip swelling [Recovering/Resolving]
  - Dizziness [Recovered/Resolved]

NARRATIVE: CASE EVENT DATE: 20240808
